FAERS Safety Report 6289491-1 (Version None)
Quarter: 2009Q3

REPORT INFORMATION
  Report Type: 
  Country: None (occurrence: None)
  Receive Date: 20090730
  Receipt Date: 20090722
  Transmission Date: 20100115
  Serious: Yes (Other)
  Sender: FDA-Public Use
  Company Number: ES-JNJFOC-20090708731

PATIENT
  Age: 91 Year
  Sex: Male

DRUGS (8)
  1. LEVOFLOXACIN [Suspect]
     Indication: DRUG USE FOR UNKNOWN INDICATION
     Route: 048
  2. WARFARIN SODIUM [Interacting]
     Route: 065
  3. WARFARIN SODIUM [Interacting]
     Indication: DRUG USE FOR UNKNOWN INDICATION
     Route: 065
  4. MOXIFLOXACIN HCL [Suspect]
     Indication: DRUG USE FOR UNKNOWN INDICATION
     Route: 065
  5. ENALAPRIL MALEATE [Concomitant]
     Route: 065
  6. GLIPIZIDE [Concomitant]
     Route: 048
  7. AMILORIDE HCL AND HYDROCHLOROTHIAZIDE [Concomitant]
     Route: 065
  8. DALTEPARIN SODIUM [Concomitant]
     Route: 065

REACTIONS (4)
  - BLOOD CREATININE INCREASED [None]
  - DRUG INTERACTION [None]
  - EPISTAXIS [None]
  - INTERNATIONAL NORMALISED RATIO INCREASED [None]
